FAERS Safety Report 12586041 (Version 1)
Quarter: 2016Q3

REPORT INFORMATION
  Report Type: Spontaneous
  Country: US (occurrence: None)
  Receive Date: 20160722
  Receipt Date: 20160722
  Transmission Date: 20161109
  Serious: Yes (Life-Threatening, Disabling)
  Sender: FDA-Public Use
  Company Number: None

PATIENT
  Age: 62 Year
  Sex: Male
  Weight: 81.65 kg

DRUGS (7)
  1. VYTORIN [Suspect]
     Active Substance: EZETIMIBE\SIMVASTATIN
  2. HYDROCODONE [Concomitant]
     Active Substance: HYDROCODONE
  3. PROZAC [Concomitant]
     Active Substance: FLUOXETINE HYDROCHLORIDE
  4. TIZANIDINE. [Concomitant]
     Active Substance: TIZANIDINE
  5. TAMSULOSIN [Concomitant]
     Active Substance: TAMSULOSIN
  6. RISPERIDOE [Concomitant]
  7. AMITRIPTOLIN [Concomitant]

REACTIONS (2)
  - Muscle spasms [None]
  - Amyotrophic lateral sclerosis [None]

NARRATIVE: CASE EVENT DATE: 20060202
